FAERS Safety Report 4891967-6 (Version None)
Quarter: 2006Q1

REPORT INFORMATION
  Report Type: 
  Country: None (occurrence: None)
  Receive Date: 20060123
  Receipt Date: 20060109
  Transmission Date: 20060701
  Serious: Yes (Hospitalization)
  Sender: FDA-Public Use
  Company Number: EWC051147161

PATIENT
  Age: 47 Year
  Sex: Male

DRUGS (1)
  1. TADALAFIL (TADALAFIL) TABLET [Suspect]
     Indication: ERECTILE DYSFUNCTION
     Dosage: ORAL
     Route: 048
     Dates: start: 20030724, end: 20030724

REACTIONS (7)
  - CAVERNOUS SINUS THROMBOSIS [None]
  - DEEP VEIN THROMBOSIS [None]
  - EPILEPSY [None]
  - HAEMORRHAGIC CEREBRAL INFARCTION [None]
  - HEMIPLEGIA [None]
  - HEPATIC STEATOSIS [None]
  - SPLENOMEGALY [None]
